FAERS Safety Report 17916929 (Version 1)
Quarter: 2020Q2

REPORT INFORMATION
  Report Type: Spontaneous
  Country: US (occurrence: US)
  Receive Date: 20200619
  Receipt Date: 20200619
  Transmission Date: 20200714
  Serious: No
  Sender: FDA-Public Use
  Company Number: None

PATIENT
  Age: 31 Year
  Sex: Female
  Weight: 82.8 kg

DRUGS (7)
  1. MOBIC [Concomitant]
     Active Substance: MELOXICAM
  2. PAXIL [Concomitant]
     Active Substance: PAROXETINE HYDROCHLORIDE
  3. AMOXICILLAN [Concomitant]
     Active Substance: AMOXICILLIN
  4. ORAJEL TOOTHACHE RINSE [Suspect]
     Active Substance: BENZYL ALCOHOL\ZINC CHLORIDE
     Indication: TOOTHACHE
     Dosage: ?          OTHER ROUTE:SWISH IN MOUTH?
     Dates: start: 20200612, end: 20200612
  5. PHENERGAN [Concomitant]
     Active Substance: PROMETHAZINE HYDROCHLORIDE
  6. OMEPRAZOLE. [Concomitant]
     Active Substance: OMEPRAZOLE
  7. GI COCKTAIL [Concomitant]

REACTIONS (6)
  - Dysphagia [None]
  - Aphasia [None]
  - Dyspnoea [None]
  - Mouth swelling [None]
  - Oral discomfort [None]
  - Burn oral cavity [None]

NARRATIVE: CASE EVENT DATE: 20200613
